FAERS Safety Report 23640588 (Version 1)
Quarter: 2024Q1

REPORT INFORMATION
  Report Type: Spontaneous
  Country: DE (occurrence: DE)
  Receive Date: 20240318
  Receipt Date: 20240318
  Transmission Date: 20240410
  Serious: Yes (Hospitalization)
  Sender: FDA-Public Use
  Company Number: DE-BEH-2024169692

PATIENT
  Age: 60 Year
  Sex: Male
  Weight: 82 kg

DRUGS (6)
  1. HIZENTRA [Suspect]
     Active Substance: HUMAN IMMUNOGLOBULIN G
     Indication: Chronic inflammatory demyelinating polyradiculoneuropathy
     Dosage: 150 MILLILITER, QW
     Route: 058
     Dates: start: 20240220
  2. HIZENTRA [Suspect]
     Active Substance: HUMAN IMMUNOGLOBULIN G
     Dosage: 150 MILLILITER, QW
     Route: 058
     Dates: start: 20240227
  3. HIZENTRA [Suspect]
     Active Substance: HUMAN IMMUNOGLOBULIN G
     Dosage: 150 MILLILITER, QW
     Route: 058
     Dates: start: 20240229, end: 20240303
  4. GAMUNEX [Concomitant]
     Active Substance: HUMAN IMMUNOGLOBULIN G
     Indication: Chronic inflammatory demyelinating polyradiculoneuropathy
     Dosage: 90 GRAM OVER 2 DAYS, QMT
     Dates: start: 202210
  5. GAMUNEX [Concomitant]
     Active Substance: HUMAN IMMUNOGLOBULIN G
     Dosage: 90 GRAM OVER 2 DAYS
     Dates: start: 202305
  6. GAMUNEX [Concomitant]
     Active Substance: HUMAN IMMUNOGLOBULIN G
     Dosage: 45 GRAM
     Dates: start: 20240220

REACTIONS (6)
  - Cerebellar infarction [Not Recovered/Not Resolved]
  - Injection site swelling [Recovering/Resolving]
  - Injection site discomfort [Unknown]
  - Injection site swelling [Recovering/Resolving]
  - Injection site discomfort [Unknown]
  - Nausea [Recovered/Resolved]

NARRATIVE: CASE EVENT DATE: 20240227
